FAERS Safety Report 9439844 (Version 2)
Quarter: 2013Q4

REPORT INFORMATION
  Report Type: Spontaneous
  Country: US (occurrence: US)
  Receive Date: 20130805
  Receipt Date: 20131004
  Transmission Date: 20140711
  Serious: No
  Sender: FDA-Public Use
  Company Number: US-PFIZER INC-2013226660

PATIENT
  Age: 40 Year
  Sex: Male

DRUGS (3)
  1. PRISTIQ [Suspect]
     Indication: ANXIETY
     Dosage: 150 MG, DAILY
     Dates: start: 2012
  2. PRISTIQ [Suspect]
     Indication: DEPRESSION
  3. OXYCODONE HYDROCHLORIDE [Suspect]
     Indication: BACK PAIN
     Dosage: 50 MG, 5 TIMES A DAY

REACTIONS (2)
  - Off label use [Unknown]
  - Drug ineffective [Unknown]
